FAERS Safety Report 9105839 (Version 1)
Quarter: 2013Q1

REPORT INFORMATION
  Report Type: Spontaneous
  Country: MX (occurrence: MX)
  Receive Date: 20130220
  Receipt Date: 20130220
  Transmission Date: 20140127
  Serious: Yes (Hospitalization)
  Sender: FDA-Public Use
  Company Number: PHHY2013MX016419

PATIENT
  Age: 76 Year
  Sex: Female

DRUGS (1)
  1. EXFORGE [Suspect]
     Indication: HYPERTENSION
     Dosage: 1 DF (VALSA 160 MG/ AMLO 5 MG ) DAILY
     Route: 048

REACTIONS (1)
  - Breast mass [Recovered/Resolved]
